FAERS Safety Report 9114460 (Version 1)
Quarter: 2013Q1

REPORT INFORMATION
  Report Type: Spontaneous
  Country: US (occurrence: None)
  Receive Date: 20130220
  Receipt Date: 20130220
  Transmission Date: 20140127
  Serious: Yes (Other)
  Sender: FDA-Public Use
  Company Number: None

PATIENT
  Age: 66 Year
  Sex: Female
  Weight: 89.36 kg

DRUGS (1)
  1. SAVELLA [Suspect]
     Indication: FIBROMYALGIA
     Dosage: ONE PILL   ONCE AND ONY ONCE   PO?ONCE AND ONLY ONCE   02/07/2013  --  02/07/2013
     Route: 048
     Dates: start: 20130207, end: 20130207

REACTIONS (3)
  - Vomiting [None]
  - Oropharyngeal pain [None]
  - Pain in jaw [None]
